FAERS Safety Report 4673497-X (Version None)
Quarter: 2005Q2

REPORT INFORMATION
  Report Type: 
  Country: None (occurrence: None)
  Receive Date: 20050525
  Receipt Date: 20050513
  Transmission Date: 20051028
  Serious: Yes (Disabling)
  Sender: FDA-Public Use
  Company Number: GB-SANOFI-SYNTHELABO-A01200503210

PATIENT
  Age: 72 Year
  Sex: Male
  Weight: 63.5 kg

DRUGS (2)
  1. XATRAL [Suspect]
     Indication: BENIGN PROSTATIC HYPERPLASIA
     Dosage: 10 MG
     Route: 048
     Dates: start: 20050330, end: 20050422
  2. RISEDRONATE SODIUM [Concomitant]
     Indication: OSTEOPOROSIS
     Dosage: 35 MG
     Route: 048
     Dates: start: 20030612

REACTIONS (2)
  - MIGRAINE WITH AURA [None]
  - VOMITING [None]
